FAERS Safety Report 16127318 (Version 1)
Quarter: 2019Q1

REPORT INFORMATION
  Report Type: Report from Study
  Country: US (occurrence: US)
  Receive Date: 20190328
  Receipt Date: 20190328
  Transmission Date: 20190418
  Serious: Yes (Hospitalization)
  Sender: FDA-Public Use
  Company Number: US-ROCHE-2286421

PATIENT
  Sex: Male

DRUGS (3)
  1. DALFAMPRIDINE. [Concomitant]
     Active Substance: DALFAMPRIDINE
  2. GILENYA [Concomitant]
     Active Substance: FINGOLIMOD HYDROCHLORIDE
  3. OCREVUS [Suspect]
     Active Substance: OCRELIZUMAB
     Indication: MULTIPLE SCLEROSIS
     Dosage: FREQUENCY: OTHER; ONGOING: YES (PRESENT)?FORM OF ADMIN TEXT: INJECTION 300/10 ML
     Route: 042
     Dates: start: 201901

REACTIONS (3)
  - Rib fracture [Unknown]
  - Pneumonia [Unknown]
  - Fall [Unknown]
